FAERS Safety Report 6243301-7 (Version None)
Quarter: 2009Q2

REPORT INFORMATION
  Report Type: 
  Country: None (occurrence: None)
  Receive Date: 20090624
  Receipt Date: 20090617
  Transmission Date: 20091009
  Serious: Yes (Other)
  Sender: FDA-Public Use
  Company Number: PHHY2009GB24737

PATIENT

DRUGS (2)
  1. ALISKIREN [Suspect]
     Indication: HYPERTENSION
  2. ALISKIREN [Suspect]
     Indication: RENAL FAILURE CHRONIC

REACTIONS (2)
  - LOSS OF CONSCIOUSNESS [None]
  - TRANSIENT ISCHAEMIC ATTACK [None]
